FAERS Safety Report 5468380-6 (Version None)
Quarter: 2007Q3

REPORT INFORMATION
  Report Type: 
  Country: None (occurrence: None)
  Receive Date: 20070924
  Receipt Date: 20070912
  Transmission Date: 20080115
  Serious: Yes (Death)
  Sender: FDA-Public Use
  Company Number: E2090-00259-SPO-JP

PATIENT
  Age: 7 Year
  Sex: Female

DRUGS (1)
  1. ZONISAMIDE [Suspect]
     Indication: EPILEPSY
     Dosage: ORAL
     Route: 048
     Dates: start: 20070317, end: 20070629

REACTIONS (2)
  - DRUG ERUPTION [None]
  - DRUG HYPERSENSITIVITY [None]
